FAERS Safety Report 13852937 (Version 1)
Quarter: 2017Q3

REPORT INFORMATION
  Report Type: Spontaneous
  Country: US (occurrence: US)
  Receive Date: 20170809
  Receipt Date: 20170809
  Transmission Date: 20171127
  Serious: No
  Sender: FDA-Public Use
  Company Number: US-ROCHE-636556

PATIENT
  Age: 82 Year
  Sex: Female
  Weight: 67.6 kg

DRUGS (3)
  1. CALCIUM [Concomitant]
     Active Substance: CALCIUM
     Indication: OSTEOPOROSIS
     Route: 048
  2. IRON SULPHATE [Concomitant]
     Active Substance: FERROUS SULFATE ANHYDROUS
     Indication: ANAEMIA
     Route: 048
  3. BONIVA [Suspect]
     Active Substance: IBANDRONATE SODIUM
     Indication: OSTEOPOROSIS
     Route: 065

REACTIONS (6)
  - Malaise [Unknown]
  - Dysgeusia [Unknown]
  - Back pain [Recovering/Resolving]
  - Back pain [Recovering/Resolving]
  - Fatigue [Recovered/Resolved]
  - Thermal burn [Recovering/Resolving]

NARRATIVE: CASE EVENT DATE: 20090405
